FAERS Safety Report 5470327-3 (Version None)
Quarter: 2007Q3

REPORT INFORMATION
  Report Type: 
  Country: None (occurrence: None)
  Receive Date: 20070925
  Receipt Date: 20070910
  Transmission Date: 20080115
  Serious: Yes (Hospitalization)
  Sender: FDA-Public Use
  Company Number: 17496

PATIENT
  Age: 63 Year
  Sex: Male

DRUGS (2)
  1. CARBOPLATIN [Suspect]
     Indication: LUNG ADENOCARCINOMA
     Dosage: 575 MG IV
     Route: 042
     Dates: start: 20070816, end: 20070816
  2. NAVELBINE [Suspect]
     Indication: LUNG ADENOCARCINOMA
     Dosage: 45 MG IV
     Route: 042
     Dates: start: 20070816, end: 20070816

REACTIONS (1)
  - ACUTE MYOCARDIAL INFARCTION [None]
